FAERS Safety Report 23843350 (Version 4)
Quarter: 2024Q3

REPORT INFORMATION
  Report Type: Report from Study
  Country: US (occurrence: US)
  Receive Date: 20240510
  Receipt Date: 20240729
  Transmission Date: 20241017
  Serious: Yes (Hospitalization)
  Sender: JOHNSON AND JOHNSON
  Company Number: US-JNJFOC-20240505717

PATIENT
  Age: 71 Year
  Sex: Male
  Weight: 75 kg

DRUGS (23)
  1. DARZALEX FASPRO [Suspect]
     Active Substance: DARATUMUMAB\HYALURONIDASE-FIHJ
     Indication: Plasma cell myeloma
     Route: 065
     Dates: start: 20230301, end: 20230804
  2. ELRANATAMAB [Suspect]
     Active Substance: ELRANATAMAB
     Indication: Plasma cell myeloma
     Route: 058
     Dates: start: 20230214, end: 20230214
  3. ELRANATAMAB [Suspect]
     Active Substance: ELRANATAMAB
     Route: 058
     Dates: start: 20230217
  4. ELRANATAMAB [Suspect]
     Active Substance: ELRANATAMAB
     Route: 058
     Dates: start: 20230222, end: 20230804
  5. POTASSIUM CHLORIDE [Concomitant]
     Active Substance: POTASSIUM CHLORIDE
     Indication: Hypokalaemia
     Route: 048
     Dates: start: 20240421, end: 20240422
  6. POTASSIUM CHLORIDE [Concomitant]
     Active Substance: POTASSIUM CHLORIDE
     Route: 048
     Dates: start: 20240424, end: 20240509
  7. POTASSIUM CHLORIDE [Concomitant]
     Active Substance: POTASSIUM CHLORIDE
     Route: 048
     Dates: start: 20240428, end: 20240504
  8. POTASSIUM CHLORIDE [Concomitant]
     Active Substance: POTASSIUM CHLORIDE
     Route: 048
     Dates: start: 20240506, end: 20240507
  9. POTASSIUM CHLORIDE [Concomitant]
     Active Substance: POTASSIUM CHLORIDE
     Dosage: ADVISED TO STOP TAKING ON 16MAY2024
     Dates: start: 20240509, end: 20240516
  10. CALCIUM CARBONATE [Concomitant]
     Active Substance: CALCIUM CARBONATE
     Indication: Hypokalaemia
     Route: 048
     Dates: start: 20240423, end: 20240509
  11. LOQUAT RESPIRATORY [Concomitant]
     Indication: Pneumonia
     Dates: start: 20240422, end: 20240429
  12. MOXIFLOXACIN [Concomitant]
     Active Substance: MOXIFLOXACIN
     Indication: Pneumonia
     Route: 048
     Dates: start: 20240422, end: 20240427
  13. LEVOFLOXACIN [Concomitant]
     Active Substance: LEVOFLOXACIN
     Dates: start: 20240423
  14. FUROSEMIDE [Concomitant]
     Active Substance: FUROSEMIDE
     Dosage: IV PUSH
     Dates: start: 20240424
  15. FUROSEMIDE [Concomitant]
     Active Substance: FUROSEMIDE
     Dosage: IV PUSH
     Dates: start: 20240430
  16. ZOPICLONE [Concomitant]
     Active Substance: ZOPICLONE
     Indication: Insomnia
     Route: 048
     Dates: start: 20240428
  17. ZOPICLONE [Concomitant]
     Active Substance: ZOPICLONE
     Dates: start: 20240504
  18. ZOPICLONE [Concomitant]
     Active Substance: ZOPICLONE
     Dates: start: 20240508
  19. HUMAN IMMUNOGLOBULIN G [Concomitant]
     Active Substance: HUMAN IMMUNOGLOBULIN G
     Indication: Infection
     Route: 042
     Dates: start: 20240430
  20. HUMAN IMMUNOGLOBULIN G [Concomitant]
     Active Substance: HUMAN IMMUNOGLOBULIN G
     Indication: Nasopharyngitis
     Dosage: ONE SACHET AT A TIME
     Dates: start: 20240430, end: 20240504
  21. HUMAN IMMUNOGLOBULIN G [Concomitant]
     Active Substance: HUMAN IMMUNOGLOBULIN G
     Indication: Pyrexia
  22. HUMAN IMMUNOGLOBULIN G [Concomitant]
     Active Substance: HUMAN IMMUNOGLOBULIN G
     Indication: Pneumonia
  23. CALCIUM CARBONATE [Concomitant]
     Active Substance: CALCIUM CARBONATE
     Indication: Hypocalcaemia
     Dosage: PATIENT ADVISED TO DISCONTINUE ON 16MAY2024
     Route: 048
     Dates: end: 20240516

REACTIONS (2)
  - Cytomegalovirus chorioretinitis [Recovered/Resolved]
  - Cytomegalovirus infection [Recovered/Resolved]

NARRATIVE: CASE EVENT DATE: 20240419
